FAERS Safety Report 9766316 (Version 2)
Quarter: 2014Q1

REPORT INFORMATION
  Report Type: Spontaneous
  Country: US (occurrence: US)
  Receive Date: 20131217
  Receipt Date: 20140305
  Transmission Date: 20141002
  Serious: Yes (Hospitalization, Other)
  Sender: FDA-Public Use
  Company Number: US-BAYER-2013-149397

PATIENT
  Age: 38 Year
  Sex: Female
  Weight: 68.93 kg

DRUGS (1)
  1. MIRENA [Suspect]
     Dosage: 20 MCG/24HR, CONT
     Route: 015
     Dates: start: 20071214, end: 20130326

REACTIONS (11)
  - Device dislocation [None]
  - Abdominal wound dehiscence [None]
  - Device dislocation [None]
  - Injury [None]
  - Vaginal haemorrhage [None]
  - Post procedural complication [None]
  - Incision site inflammation [None]
  - Pelvic pain [None]
  - General physical health deterioration [None]
  - Anxiety [None]
  - Anhedonia [None]
